FAERS Safety Report 6509490-1 (Version None)
Quarter: 2009Q4

REPORT INFORMATION
  Report Type: 
  Country: None (occurrence: None)
  Receive Date: 20091222
  Receipt Date: 20091216
  Transmission Date: 20100525
  Serious: Yes (Disabling, Other)
  Sender: FDA-Public Use
  Company Number: GB-AMGEN-UK256260

PATIENT
  Sex: Female
  Weight: 76.5 kg

DRUGS (12)
  1. ARANESP [Suspect]
     Indication: ANAEMIA
     Route: 042
     Dates: start: 20050531, end: 20071201
  2. INSULIN [Concomitant]
  3. ALFACALCIDOL [Concomitant]
  4. AMLODIPINE [Concomitant]
  5. ASPIRIN [Concomitant]
     Route: 048
  6. ATORVASTATIN CALCIUM [Concomitant]
     Route: 048
  7. FOLIC ACID [Concomitant]
     Route: 048
  8. RAMIPRIL [Concomitant]
  9. SEVELAMER HCL [Concomitant]
  10. VENOFER [Concomitant]
     Route: 042
  11. VITAMIN B COMPLEX CAP [Concomitant]
     Route: 048
  12. ASCORBIC ACID [Concomitant]
     Route: 048

REACTIONS (3)
  - HYPERSENSITIVITY [None]
  - HYPOTENSION [None]
  - LOSS OF CONSCIOUSNESS [None]
